FAERS Safety Report 6396769-X (Version None)
Quarter: 2009Q4

REPORT INFORMATION
  Report Type: 
  Country: None (occurrence: None)
  Receive Date: 20091012
  Receipt Date: 20090722
  Transmission Date: 20100525
  Serious: No
  Sender: FDA-Public Use
  Company Number: US-ASTRAZENECA-2009SE05693

PATIENT
  Age: 58 Year
  Sex: Male
  Weight: 121.1 kg

DRUGS (6)
  1. SYMBICORT [Suspect]
     Indication: CHRONIC OBSTRUCTIVE PULMONARY DISEASE
     Dosage: 320/? MCG BID
     Route: 055
  2. PREVENTIL [Concomitant]
  3. SPIRIVA [Concomitant]
  4. AMLODIPINE BESYLATE [Concomitant]
  5. GENERIC ATTIVAN [Concomitant]
  6. PROZAC [Concomitant]

REACTIONS (4)
  - CONTUSION [None]
  - DRY MOUTH [None]
  - DYSPNOEA [None]
  - JOINT SWELLING [None]
